FAERS Safety Report 14233731 (Version 11)
Quarter: 2018Q2

REPORT INFORMATION
  Report Type: Report from Study
  Country: GB (occurrence: GB)
  Receive Date: 20171129
  Receipt Date: 20180606
  Transmission Date: 20180711
  Serious: Yes (Hospitalization, Other)
  Sender: FDA-Public Use
  Company Number: GB-ASPEN-GLO2017GB007741

PATIENT
  Age: 82 Year
  Sex: Female

DRUGS (47)
  1. DEXAMETHASONE. [Suspect]
     Active Substance: DEXAMETHASONE
     Dosage: 12 UNK
     Route: 048
  2. VELCADE [Suspect]
     Active Substance: BORTEZOMIB
     Dosage: 1.15 MG/M2, CYCLICAL (DAYS 1, 8, 15 AND 22 OF EACH 35-DAY CYCLE FOR CYCLES 9 AND BEYOND);
     Route: 058
  3. ERYTHROPOIETIN [Concomitant]
     Active Substance: ERYTHROPOIETIN
     Indication: ANAEMIA
     Dosage: 12000 U
     Route: 058
     Dates: start: 20161118
  4. LEKOVIT CA [Concomitant]
     Active Substance: CALCIUM CARBONATE\CHOLECALCIFEROL
     Indication: PROPHYLAXIS
     Dosage: 1 DF, QD
     Route: 048
     Dates: start: 20101202
  5. DOXAZOSIN MESYLATE. [Concomitant]
     Active Substance: DOXAZOSIN MESYLATE
     Indication: HYPERTENSION
     Dosage: 4 MG, BID
     Route: 048
     Dates: start: 20080211
  6. OXYBUTYNIN. [Concomitant]
     Active Substance: OXYBUTYNIN CHLORIDE
     Indication: INCONTINENCE
     Dosage: 2.5 MG, BID
     Route: 048
     Dates: start: 20160602
  7. EPOETIN [Concomitant]
     Active Substance: ERYTHROPOIETIN
     Indication: ANAEMIA
     Dosage: 30000 DF
     Route: 058
     Dates: start: 20160901, end: 20161117
  8. DEXAMETHASONE. [Suspect]
     Active Substance: DEXAMETHASONE
     Dosage: 20 MG ON DAYS 1, 2, 8, 9, 15, 16, 22 AND 23 OF EACH 35-DAY CYCLE
     Route: 048
     Dates: start: 20170106, end: 20170117
  9. VELCADE [Suspect]
     Active Substance: BORTEZOMIB
     Dosage: 1.3 MG/M2, CYCLICAL (DAYS 1, 8, 15 AND 22 OF EACH 35-DAY CYCLE FOR CYCLES 9 AND BEYOND);
     Route: 058
  10. LANSOPRAZOLE. [Concomitant]
     Active Substance: LANSOPRAZOLE
     Indication: HIATUS HERNIA
     Dosage: 30 MG, BID
     Route: 048
     Dates: start: 20130815
  11. PARACETAMOL [Concomitant]
     Active Substance: ACETAMINOPHEN
     Indication: HEADACHE
     Dosage: 500 MG, QD
     Route: 048
     Dates: start: 20170729
  12. VELCADE [Suspect]
     Active Substance: BORTEZOMIB
     Dosage: UNK, CYCLICAL (DAYS 1, 8, 15 AND 22 OF EACH 35-DAY CYCLE FOR CYCLES 9 AND BEYOND);
     Route: 058
  13. PAMIDRONATE [Concomitant]
     Active Substance: PAMIDRONATE DISODIUM
     Indication: BONE DISORDER
     Dosage: 30 MG, QD
     Route: 042
     Dates: start: 20170728
  14. DEXAMETHASONE. [Suspect]
     Active Substance: DEXAMETHASONE
     Dosage: 12 MG CYCLICAL (DAYS 1, 2, 4, 5, 8, 9, 11 AND 12 OF
     Route: 048
     Dates: start: 20170217, end: 20170228
  15. DEXAMETHASONE. [Suspect]
     Active Substance: DEXAMETHASONE
     Dosage: 12 MG CYCLICAL (DAYS 1, 2, 4, 5, 8, 9, 11 AND 12 OF EACH 21-DAY CYCLE FOR CYCLES 1-8)
     Route: 048
     Dates: start: 20170407, end: 20170429
  16. DEXAMETHASONE. [Suspect]
     Active Substance: DEXAMETHASONE
     Dosage: 20 UNK
     Route: 048
  17. VENETOCLAX. [Suspect]
     Active Substance: VENETOCLAX
     Dosage: 1 DF, QD
     Route: 048
     Dates: start: 20170630, end: 20171026
  18. VELCADE [Suspect]
     Active Substance: BORTEZOMIB
     Dosage: UNK CYCLICAL (DAYS 1, 8, 15 AND 22 OF EACH 35-DAY CYCLE FOR CYCLES 9 AND BEYOND);
     Route: 058
  19. GABAPENTIN. [Concomitant]
     Active Substance: GABAPENTIN
     Indication: BURSITIS
     Dosage: 300 MG, TID
     Route: 048
     Dates: start: 20161117
  20. ACETAMINOPHEN W/CODEINE PHOSPHATE [Concomitant]
     Active Substance: ACETAMINOPHEN\CODEINE PHOSPHATE
     Indication: HEADACHE
     Dosage: 32 MG
     Route: 048
     Dates: start: 20170729
  21. DEXAMETHASONE. [Suspect]
     Active Substance: DEXAMETHASONE
     Dosage: 8 MG, CYCLICAL (DAYS 1, 2, 8, 9, 15, 16, 22 AND 23 OF EACH 35-DAY CYCLE FOR CYCLES 9 AND BEYOND);
     Route: 048
  22. DEXAMETHASONE. [Suspect]
     Active Substance: DEXAMETHASONE
     Dosage: 12 MG, CYCLICAL (DAYS 1, 2, 4, 5, 8, 9, 11 AND 12 OF EACH 21-DAY CYCLE FOR CYCLES 1-8)
     Route: 048
  23. DEXAMETHASONE. [Suspect]
     Active Substance: DEXAMETHASONE
     Dosage: 4 MG, CYCLICAL (DAYS 1, 2, 8, 9, 15, 16, 22 AND 23 OF EACH 35-DAY CYCLE FOR CYCLES 9 AND BEYOND);
     Route: 048
  24. VENETOCLAX. [Suspect]
     Active Substance: VENETOCLAX
     Indication: PLASMA CELL MYELOMA
     Dosage: 1 DF, QD
     Route: 048
     Dates: start: 20170106, end: 20170124
  25. VENETOCLAX. [Suspect]
     Active Substance: VENETOCLAX
     Dosage: 1 DF, QD
     Route: 048
     Dates: start: 20170331, end: 20170607
  26. VELCADE [Suspect]
     Active Substance: BORTEZOMIB
     Dosage: 1.3 MG/M2 CYCLICAL (DAYS 1, 8, 15 AND 22 OF EACH 35-DAY CYCLE FOR CYCLES 9 AND BEYOND);
     Route: 058
  27. PANADEINE CO [Concomitant]
     Active Substance: ACETAMINOPHEN\CODEINE PHOSPHATE
     Indication: HEADACHE
     Dosage: 8 MG, QID
     Route: 048
  28. DOMPERIDONE MALEATE [Concomitant]
     Active Substance: DOMPERIDONE MALEATE
     Indication: NAUSEA
     Dosage: 10 MG, TID
     Route: 048
     Dates: start: 20170109, end: 20170223
  29. DEXAMETHASONE. [Suspect]
     Active Substance: DEXAMETHASONE
     Indication: PLASMA CELL MYELOMA
     Dosage: 8 MG, CYCLICAL (DAYS 1, 2, 4, 5, 8, 9, 11 AND 12 OF EACH 21-DAY CYCLE FOR CYCLES 1-8);
     Route: 048
  30. POTASSIUM [Concomitant]
     Active Substance: POTASSIUM
     Indication: BLOOD POTASSIUM DECREASED
     Dosage: UNK
     Route: 048
  31. OSELTAMIVIR PHOSPHATE. [Concomitant]
     Active Substance: OSELTAMIVIR PHOSPHATE
     Indication: INFLUENZA
     Dosage: 75 MG, BID
     Route: 048
     Dates: start: 20170330
  32. FUROSEMIDE SODIUM [Concomitant]
     Active Substance: FUROSEMIDE SODIUM
     Indication: OEDEMA PERIPHERAL
     Dosage: 40 MG, QD
     Route: 048
     Dates: start: 20170208
  33. FUROSEMIDE SODIUM [Concomitant]
     Active Substance: FUROSEMIDE SODIUM
     Dosage: 40 MG, BID
     Route: 048
     Dates: start: 201702, end: 20170207
  34. VENETOCLAX. [Suspect]
     Active Substance: VENETOCLAX
     Dosage: 1 DF, QD
     Route: 048
     Dates: start: 20170211, end: 20170309
  35. VENETOCLAX. [Suspect]
     Active Substance: VENETOCLAX
     Dosage: 1 DF, QD
     Route: 048
     Dates: start: 20171110
  36. VELCADE [Suspect]
     Active Substance: BORTEZOMIB
     Dosage: 1.8 MG/M2 CYCLICAL (DAYS 1, 8, 15 AND 22 OF EACH 35-DAY CYCLE FOR CYCLES 9 AND BEYOND);
     Route: 058
  37. LOPERAMIDE HYDROCHLORIDE. [Concomitant]
     Active Substance: LOPERAMIDE HYDROCHLORIDE
     Indication: DIARRHOEA
     Dosage: 2 MG, PRN
     Route: 048
     Dates: start: 20170512
  38. ERYTHROPOIETIN [Concomitant]
     Active Substance: ERYTHROPOIETIN
     Dosage: 30000 U
     Route: 058
     Dates: start: 20160901, end: 20161117
  39. DOMPERIDONE MALEATE [Concomitant]
     Active Substance: DOMPERIDONE MALEATE
     Indication: PROPHYLAXIS OF NAUSEA AND VOMITING
     Dosage: 10 MG, QD
     Route: 048
     Dates: start: 20170224
  40. ASPIRIN. [Concomitant]
     Active Substance: ASPIRIN
     Indication: THROMBOSIS PROPHYLAXIS
     Dosage: 75 MG, QD
     Route: 048
     Dates: start: 20170529
  41. ASPIRIN. [Concomitant]
     Active Substance: ASPIRIN
     Indication: PROPHYLAXIS
  42. COCODAMOL [Concomitant]
     Active Substance: ACETAMINOPHEN\CODEINE PHOSPHATE
     Indication: HEADACHE
     Dosage: 32 MG, QD
     Route: 048
     Dates: start: 20170729
  43. EPOETIN [Concomitant]
     Active Substance: ERYTHROPOIETIN
     Dosage: 12000 DF
     Route: 058
     Dates: start: 20161118
  44. DEXAMETHASONE. [Suspect]
     Active Substance: DEXAMETHASONE
     Dosage: 8 MG CYCLICAL (DAYS 1, 2, 4, 5, 8, 9, 11 AND 12 OF EACH 21-DAY CYCLE FOR CYCLES 1-8)
     Route: 048
     Dates: start: 20170512, end: 20170613
  45. VELCADE [Suspect]
     Active Substance: BORTEZOMIB
     Indication: PLASMA CELL MYELOMA
     Dosage: UNKNOWN, CYCLICAL (DAYS 1, 8, 15 AND 22 OF EACH 35-DAY CYCLE FOR CYCLES 9 AND BEYOND);
     Route: 058
  46. VELCADE [Suspect]
     Active Substance: BORTEZOMIB
     Dosage: 2.3 MG/M2, CYCLICAL (DAYS 1, 8, 15 AND 22 OF EACH 35-DAY CYCLE FOR CYCLES 9 AND BEYOND);
     Route: 058
  47. AMLODIPINE BESILATE [Concomitant]
     Active Substance: AMLODIPINE BESYLATE
     Indication: HYPERTENSION
     Dosage: 10 MG, QD
     Route: 048
     Dates: start: 20161102

REACTIONS (3)
  - Lung infection [Recovered/Resolved]
  - Anaemia [Recovered/Resolved]
  - Infection [Recovered/Resolved]

NARRATIVE: CASE EVENT DATE: 20171026
